FAERS Safety Report 5662182-3 (Version None)
Quarter: 2008Q1

REPORT INFORMATION
  Report Type: 
  Country: None (occurrence: None)
  Receive Date: 20080221
  Receipt Date: 20070918
  Transmission Date: 20080703
  Serious: Yes (Other)
  Sender: FDA-Public Use
  Company Number: PHEH2007US12526

PATIENT
  Age: 70 Year
  Sex: Female

DRUGS (6)
  1. DIOVAN [Suspect]
     Indication: HYPERTENSION
     Dates: end: 20060728
  2. TWINRIX(HEPATITIS A VACCINE, HEPATITIS B VACCINE) [Suspect]
     Indication: IMMUNISATION
     Dosage: 1 ML
     Dates: start: 20070417
  3. POLIO-VACCINE (POLIOMYELITIS VACCINE INACTIVATED) [Concomitant]
  4. YELLOW FEVER VACCINE (YELLOW FEVER VACCINE) [Concomitant]
  5. RISEDRONIC ACID (RISEDRONIC ACID) [Concomitant]
  6. TYPHOID VACCINE (TYPHOID VACCINE) [Concomitant]

REACTIONS (3)
  - ANGIOEDEMA [None]
  - LIP SWELLING [None]
  - SWELLING FACE [None]
